FAERS Safety Report 9925023 (Version 2)
Quarter: 2014Q2

REPORT INFORMATION
  Report Type: Spontaneous
  Country: US (occurrence: US)
  Receive Date: 20140226
  Receipt Date: 20140404
  Transmission Date: 20141212
  Serious: No
  Sender: FDA-Public Use
  Company Number: US-PFIZER INC-2014052722

PATIENT
  Age: 66 Year
  Sex: Male
  Weight: 63.5 kg

DRUGS (2)
  1. DEPO-TESTOSTERONE [Suspect]
     Dosage: UNK
  2. GUAIFENESIN [Interacting]
     Dosage: UNK

REACTIONS (2)
  - Drug interaction [Unknown]
  - Drug effect decreased [Unknown]
